FAERS Safety Report 23792439 (Version 1)
Quarter: 2024Q2

REPORT INFORMATION
  Report Type: Spontaneous
  Country: US (occurrence: US)
  Receive Date: 20240429
  Receipt Date: 20240429
  Transmission Date: 20240716
  Serious: Yes (Hospitalization, Other)
  Sender: FDA-Public Use
  Company Number: US-LUPIN PHARMACEUTICALS INC.-2024-03423

PATIENT

DRUGS (1)
  1. VANCOMYCIN HYDROCHLORIDE [Suspect]
     Active Substance: VANCOMYCIN HYDROCHLORIDE
     Indication: Clostridium difficile infection
     Dosage: UNK
     Route: 048
     Dates: start: 20240411

REACTIONS (7)
  - Dehydration [Recovered/Resolved]
  - Abdominal distension [Unknown]
  - Urine output decreased [Not Recovered/Not Resolved]
  - Back pain [Unknown]
  - Pruritus [Unknown]
  - Ear dryness [Unknown]
  - Deafness [Unknown]

NARRATIVE: CASE EVENT DATE: 20240413
